FAERS Safety Report 24624786 (Version 1)
Quarter: 2024Q4

REPORT INFORMATION
  Report Type: Spontaneous
  Country: US (occurrence: US)
  Receive Date: 20241115
  Receipt Date: 20241115
  Transmission Date: 20250115
  Serious: Yes (Other)
  Sender: FRESENIUS KABI
  Company Number: US-FreseniusKabi-FK202417001

PATIENT
  Age: 24 Year
  Sex: Female

DRUGS (2)
  1. MAGNESIUM [Suspect]
     Active Substance: MAGNESIUM
     Indication: Seizure prophylaxis
     Dosage: LOADING DOSE
     Route: 042
  2. MAGNESIUM [Suspect]
     Active Substance: MAGNESIUM
     Dosage: FORM OF ADMINISTRATION: INFUSION
     Route: 042

REACTIONS (3)
  - Posterior reversible encephalopathy syndrome [Recovered/Resolved]
  - Hypermagnesaemia [Recovering/Resolving]
  - Maternal exposure during delivery [Unknown]
